FAERS Safety Report 9142281 (Version 1)
Quarter: 2013Q1

REPORT INFORMATION
  Report Type: Spontaneous
  Country: US (occurrence: US)
  Receive Date: 20130305
  Receipt Date: 20130305
  Transmission Date: 20140127
  Serious: Yes (Hospitalization)
  Sender: FDA-Public Use
  Company Number: US-ELI_LILLY_AND_COMPANY-US201302000200

PATIENT
  Sex: Female
  Weight: 48.53 kg

DRUGS (3)
  1. ADCIRCA [Suspect]
  2. LETAIRIS [Concomitant]
     Indication: COR PULMONALE CHRONIC
     Dosage: 6 MG, UNK
     Dates: start: 20130115
  3. TYVASO [Concomitant]

REACTIONS (8)
  - Liver disorder [Unknown]
  - Swelling [Unknown]
  - Headache [Unknown]
  - Urinary tract infection [Unknown]
  - Localised oedema [Unknown]
  - Cough [Unknown]
  - Fluid retention [Unknown]
  - Dysphonia [Unknown]
